FAERS Safety Report 9264971 (Version 1)
Quarter: 2013Q2

REPORT INFORMATION
  Report Type: Spontaneous
  Country: US (occurrence: US)
  Receive Date: 20130501
  Receipt Date: 20130501
  Transmission Date: 20140414
  Serious: Yes (Other)
  Sender: FDA-Public Use
  Company Number: US-ACCORD-017392

PATIENT
  Age: 50 Year
  Sex: Male

DRUGS (2)
  1. GEMCITABINE [Suspect]
     Indication: GALLBLADDER ADENOCARCINOMA
  2. CISPLATIN [Suspect]
     Indication: GALLBLADDER ADENOCARCINOMA

REACTIONS (6)
  - Tumour lysis syndrome [Unknown]
  - Urosepsis [Unknown]
  - Deep vein thrombosis [Unknown]
  - Pulmonary embolism [Unknown]
  - Renal failure acute [Unknown]
  - Off label use [Unknown]
